FAERS Safety Report 20907880 (Version 1)
Quarter: 2022Q2

REPORT INFORMATION
  Report Type: Report from Study
  Country: US (occurrence: US)
  Receive Date: 20220602
  Receipt Date: 20220602
  Transmission Date: 20220720
  Serious: Yes (Hospitalization)
  Sender: FDA-Public Use
  Company Number: US-Vifor (International) Inc.-VIT-2020-08575

PATIENT
  Age: 72 Year
  Sex: Female
  Weight: 123.94 kg

DRUGS (2)
  1. VELTASSA [Suspect]
     Active Substance: PATIROMER
     Indication: Hyperkalaemia
     Route: 048
  2. VELTASSA [Suspect]
     Active Substance: PATIROMER
     Route: 048

REACTIONS (4)
  - Swelling [Recovered/Resolved]
  - Dyspnoea [Unknown]
  - Blood potassium increased [Unknown]
  - Off label use [Unknown]
